FAERS Safety Report 9720853 (Version 4)
Quarter: 2014Q2

REPORT INFORMATION
  Report Type: Spontaneous
  Country: US (occurrence: US)
  Receive Date: 20131129
  Receipt Date: 20140418
  Transmission Date: 20141212
  Serious: Yes (Other)
  Sender: FDA-Public Use
  Company Number: US-MERCK-1311USA011866

PATIENT
  Age: 59 Year
  Sex: Female

DRUGS (4)
  1. PEGINTRON [Suspect]
     Indication: HEPATITIS C
     Dosage: 0.5 ML, Q7DAYS
     Route: 058
     Dates: start: 20130831
  2. REBETOL [Suspect]
     Indication: HEPATITIS C
     Dosage: 600 MG, BID
     Route: 048
     Dates: start: 20130831
  3. TELAPREVIR [Suspect]
     Indication: HEPATITIS C
     Dosage: UNK
     Dates: start: 20130813, end: 20131121
  4. PROCRIT [Concomitant]
     Dosage: 20 UNITS Q WEEK

REACTIONS (11)
  - Transfusion [Recovering/Resolving]
  - Anaemia [Recovering/Resolving]
  - Gait disturbance [Recovering/Resolving]
  - Thirst [Unknown]
  - Asthenia [Recovering/Resolving]
  - Fatigue [Unknown]
  - Red blood cell count decreased [Unknown]
  - White blood cell count decreased [Unknown]
  - Drug dose omission [Unknown]
  - Haemoglobin decreased [Unknown]
  - Platelet count decreased [Unknown]
